FAERS Safety Report 10047218 (Version 1)
Quarter: 2014Q1

REPORT INFORMATION
  Report Type: Spontaneous
  Country: IT (occurrence: IT)
  Receive Date: 20140331
  Receipt Date: 20140331
  Transmission Date: 20141002
  Serious: Yes (Hospitalization)
  Sender: FDA-Public Use
  Company Number: IT-NOVOPROD-404269

PATIENT
  Age: 80 Year
  Sex: Female

DRUGS (7)
  1. NOVORAPID FLEXPEN [Suspect]
     Indication: DIABETES MELLITUS
     Dosage: 40 U, QD (10U+20U+10U)
     Route: 058
     Dates: start: 20130101
  2. LEVEMIR FLEXPEN [Suspect]
     Indication: DIABETES MELLITUS
     Dosage: 40 U, QD (25U+15U)
     Route: 058
     Dates: start: 20130101
  3. TIKLID [Concomitant]
     Dosage: 250 MG
     Route: 065
  4. TRIATEC                            /00116401/ [Concomitant]
     Dosage: 5 MG
     Route: 048
  5. LASIX                              /00032601/ [Concomitant]
     Dosage: 25 MG,
     Route: 065
  6. ESKIM [Concomitant]
     Dosage: 1000 MG,
     Route: 065
  7. LANSOPRAZOLO [Concomitant]
     Dosage: 30 MG
     Route: 048

REACTIONS (4)
  - Vertigo [Unknown]
  - Vomiting [Unknown]
  - Hypoglycaemia [Unknown]
  - Confusional state [Unknown]
